FAERS Safety Report 9548692 (Version 1)
Quarter: 2013Q3

REPORT INFORMATION
  Report Type: Spontaneous
  Country: US (occurrence: None)
  Receive Date: 20130919
  Receipt Date: 20130919
  Transmission Date: 20140515
  Serious: Yes (Life-Threatening)
  Sender: FDA-Public Use
  Company Number: COL_14338_2013

PATIENT
  Age: 65 Year
  Sex: Male
  Weight: 142 kg

DRUGS (7)
  1. PERIOGARD [Suspect]
     Indication: POSTOPERATIVE CARE
     Route: 048
  2. CHLORHEXIDINE DIGLUCONATE [Suspect]
     Indication: PREOPERATIVE CARE
     Dosage: PREOPERATIVE SKIN CLOTHS
     Route: 061
  3. METOPROLOL [Concomitant]
  4. CAPTOPRIL [Concomitant]
  5. ASPIRIN [Concomitant]
  6. ATORVASTATIN [Concomitant]
  7. NAPROXEN [Concomitant]

REACTIONS (1)
  - Anaphylactic reaction [None]
